FAERS Safety Report 20612198 (Version 1)
Quarter: 2022Q1

REPORT INFORMATION
  Report Type: Spontaneous
  Country: US (occurrence: None)
  Receive Date: 20220318
  Receipt Date: 20220318
  Transmission Date: 20220423
  Serious: Yes (Hospitalization)
  Sender: FDA-Public Use
  Company Number: None

PATIENT
  Age: 55 Year
  Sex: Female

DRUGS (1)
  1. EVUSHELD [Suspect]
     Active Substance: CILGAVIMAB\TIXAGEVIMAB
     Indication: COVID-19
     Dates: start: 20220217, end: 20220217

REACTIONS (4)
  - COVID-19 [None]
  - Acute kidney injury [None]
  - BK virus infection [None]
  - Epstein-Barr virus infection [None]

NARRATIVE: CASE EVENT DATE: 20220221
